FAERS Safety Report 9390463 (Version 1)
Quarter: 2013Q3

REPORT INFORMATION
  Report Type: Spontaneous
  Country: US (occurrence: US)
  Receive Date: 20130709
  Receipt Date: 20130709
  Transmission Date: 20140515
  Serious: No
  Sender: FDA-Public Use
  Company Number: US-B.I. PHARMACEUTICALS,INC./RIDGEFIELD-2013-BI-19669BP

PATIENT
  Sex: Female
  Weight: 104 kg

DRUGS (25)
  1. SPIRIVA [Suspect]
     Indication: CHRONIC OBSTRUCTIVE PULMONARY DISEASE
     Dosage: 18 MCG
     Route: 055
     Dates: start: 2010
  2. OMEPRAZOLE [Concomitant]
     Dosage: 40 MG
     Route: 048
  3. ADVAIR [Concomitant]
     Dosage: (POWDER) STRENGTH: 250/50; DAILY DOSE: 500/100
     Route: 055
  4. MONTELUKAST [Concomitant]
     Dosage: 10 MG
     Route: 048
  5. NAMENDA [Concomitant]
     Dosage: 20 MG
     Route: 048
  6. NASONEX [Concomitant]
     Dosage: (NASAL SPRAY) STRENGTH: 1 SPRAY; DAILY DOSE: 1 SPRAY
     Route: 045
  7. CHLORDIAZEPOXIDE AND AMITRIPTYLINE [Concomitant]
     Dosage: (TABLET) STRENGTH: 10/25; DAILY DOSE: 30/75
     Route: 048
  8. PRISTIQ [Concomitant]
     Dosage: 100 MG
     Route: 048
  9. LISINOPRIL [Concomitant]
     Dosage: 20 MG
     Route: 048
  10. FISH OIL [Concomitant]
     Dosage: 1000 MG
     Route: 048
  11. ACIDOPHILUS [Concomitant]
     Dosage: STRENGTH: 1 CAPSULE; DAILY DOSE: 1 CAPSULE
     Route: 048
  12. LAMICTAL [Concomitant]
  13. SAPHRIS [Concomitant]
  14. MELOXICAM [Concomitant]
     Dosage: 15 MG
     Route: 048
  15. BENAZEPRIL [Concomitant]
     Dosage: 5 MG
     Route: 048
  16. CALCIUM [Concomitant]
     Dosage: 600 MG
     Route: 048
  17. GABAPENTIN [Concomitant]
     Dosage: 200 MG
     Route: 048
  18. LIDODERM PATCH [Concomitant]
     Dosage: FORMULATION :PATCH; STRENGTH: 1 PATCH; DAILY DOSE: 1 PATCH
     Route: 061
  19. ALENDRONATE [Concomitant]
     Dosage: 35 MG
     Route: 048
  20. ZYFLO [Concomitant]
     Dosage: 1200 MG
     Route: 048
  21. VITAMIN C [Concomitant]
     Dosage: 1000 MG
     Route: 048
  22. MELATONIN [Concomitant]
     Dosage: 3 MG
     Route: 048
  23. ASTELIN [Concomitant]
     Dosage: FORMULATION: NASAL SPRAY; STRENGTH: 1 SPRAY; DAILY DOSE: 2 SPRAYS
     Route: 045
  24. VYTORIN [Concomitant]
     Dosage: STRENGTH: 10/40; DAILY DOSE: 10/40
     Route: 048
  25. ASPIRIN [Concomitant]
     Dosage: 162 MG
     Route: 048

REACTIONS (2)
  - Dry mouth [Not Recovered/Not Resolved]
  - Dementia Alzheimer^s type [Not Recovered/Not Resolved]
